FAERS Safety Report 5811445-7 (Version None)
Quarter: 2008Q3

REPORT INFORMATION
  Report Type: 
  Country: None (occurrence: None)
  Receive Date: 20080715
  Receipt Date: 20080715
  Transmission Date: 20090109
  Serious: Yes (Other)
  Sender: FDA-Public Use
  Company Number: None

PATIENT
  Sex: Male
  Weight: 106.5953 kg

DRUGS (1)
  1. LOTREL [Suspect]
     Indication: HYPERTENSION
     Dosage: ONE QD
     Dates: start: 20070330

REACTIONS (2)
  - ABDOMINAL DISCOMFORT [None]
  - BLOOD PRESSURE INADEQUATELY CONTROLLED [None]
